FAERS Safety Report 4501652-8 (Version None)
Quarter: 2004Q4

REPORT INFORMATION
  Report Type: 
  Country: None (occurrence: None)
  Receive Date: 20041109
  Receipt Date: 20041027
  Transmission Date: 20050328
  Serious: Yes (Other)
  Sender: FDA-Public Use
  Company Number: 2004-11-0001

PATIENT
  Age: 50 Year
  Sex: Female

DRUGS (2)
  1. QVAR INHALATION AEROSOL - IVAX LABORATORIES AEROSOL SOLUTION [Suspect]
     Indication: ASTHMA
     Dosage: 100 MCG INHALATION
     Dates: start: 20030630, end: 20040201
  2. ALBUTEROL [Concomitant]

REACTIONS (6)
  - ANOREXIA [None]
  - CHANGE OF BOWEL HABIT [None]
  - DYSGEUSIA [None]
  - FEELING ABNORMAL [None]
  - NAUSEA [None]
  - WEIGHT DECREASED [None]
